FAERS Safety Report 13535815 (Version 1)
Quarter: 2017Q2

REPORT INFORMATION
  Report Type: Spontaneous
  Country: GB (occurrence: GB)
  Receive Date: 20170511
  Receipt Date: 20170511
  Transmission Date: 20170830
  Serious: Yes (Other)
  Sender: FDA-Public Use
  Company Number: GB-AUROBINDO-AUR-APL-2017-33445

PATIENT
  Age: 50 Year
  Sex: Male
  Weight: 69.85 kg

DRUGS (4)
  1. PRAMIPEXOLE TABLET [Suspect]
     Active Substance: PRAMIPEXOLE
     Indication: RESTLESS LEGS SYNDROME
     Dosage: UNK
     Route: 048
     Dates: start: 2013, end: 2013
  2. PRAMIPEXOLE TABLET [Suspect]
     Active Substance: PRAMIPEXOLE
     Dosage: 1 DF, PRESCRIBED 2 LARGE TABLETS A DAY.
     Route: 048
     Dates: start: 2017, end: 2017
  3. PRAMIPEXOLE TABLET [Suspect]
     Active Substance: PRAMIPEXOLE
     Dosage: 2 DF, UNK
     Route: 048
     Dates: start: 2017, end: 20170323
  4. PRAMIPEXOLE TABLET [Suspect]
     Active Substance: PRAMIPEXOLE
     Dosage: 4 DF, PRESCRIBED 6 TABLETS A DAY
     Route: 048
     Dates: start: 2013, end: 2017

REACTIONS (2)
  - Malaise [Unknown]
  - Factitious disorder [Recovered/Resolved with Sequelae]

NARRATIVE: CASE EVENT DATE: 2013
